FAERS Safety Report 10900857 (Version 1)
Quarter: 2015Q1

REPORT INFORMATION
  Report Type: Spontaneous
  Country: US (occurrence: US)
  Receive Date: 20150310
  Receipt Date: 20150310
  Transmission Date: 20150721
  Serious: No
  Sender: FDA-Public Use
  Company Number: US-PFIZER INC-2015080778

PATIENT
  Age: 59 Year
  Sex: Female
  Weight: 75 kg

DRUGS (4)
  1. NARDIL [Suspect]
     Active Substance: PHENELZINE SULFATE
     Indication: DEPRESSION
  2. NARDIL [Suspect]
     Active Substance: PHENELZINE SULFATE
     Indication: PANIC DISORDER
     Dosage: 15 MG, 3X/DAY
     Dates: start: 2015
  3. XANAX [Concomitant]
     Active Substance: ALPRAZOLAM
     Indication: AGORAPHOBIA
  4. XANAX [Concomitant]
     Active Substance: ALPRAZOLAM
     Indication: PANIC ATTACK
     Dosage: UNK
     Dates: start: 2015

REACTIONS (2)
  - Micturition urgency [Unknown]
  - Headache [Unknown]

NARRATIVE: CASE EVENT DATE: 201501
